FAERS Safety Report 9132446 (Version 1)
Quarter: 2013Q1

REPORT INFORMATION
  Report Type: Spontaneous
  Country: US (occurrence: US)
  Receive Date: 20130301
  Receipt Date: 20130301
  Transmission Date: 20140127
  Serious: Yes (Death)
  Sender: FDA-Public Use
  Company Number: US-ROCHE-1190594

PATIENT
  Age: 62 Year
  Sex: Male
  Weight: 80.5 kg

DRUGS (8)
  1. TARCEVA [Suspect]
     Indication: HEPATIC CANCER
     Route: 048
     Dates: start: 20120312, end: 20120327
  2. AVASTIN [Suspect]
     Indication: HEPATIC CANCER
     Route: 042
     Dates: start: 20120312, end: 20120327
  3. PROGRAF [Concomitant]
     Indication: LIVER TRANSPLANT
     Route: 048
  4. DILTIAZEM [Concomitant]
     Route: 048
  5. NEXIUM [Concomitant]
     Indication: GASTROOESOPHAGEAL REFLUX DISEASE
     Route: 048
  6. MARINOL (UNITED STATES) [Concomitant]
     Route: 048
  7. DILAUDID [Concomitant]
     Route: 048
  8. SENNA [Concomitant]
     Route: 048

REACTIONS (1)
  - Respiratory failure [Fatal]
